FAERS Safety Report 14474328 (Version 2)
Quarter: 2018Q1

REPORT INFORMATION
  Report Type: Spontaneous
  Country: JP (occurrence: JP)
  Receive Date: 20180201
  Receipt Date: 20180206
  Transmission Date: 20180509
  Serious: Yes (Other)
  Sender: FDA-Public Use
  Company Number: JP-PFIZER INC-2018040027

PATIENT
  Age: 57 Year
  Sex: Male

DRUGS (3)
  1. NEDAPLATIN [Suspect]
     Active Substance: NEDAPLATIN
     Indication: OESOPHAGEAL SQUAMOUS CELL CARCINOMA STAGE IV
     Dosage: 30 MG/M2, CYCLIC (ADMINISTERED EVERY OTHER WEEK)
  2. NEDAPLATIN [Suspect]
     Active Substance: NEDAPLATIN
     Dosage: CYCLIC (30G/M2 ADMINISTERED EVERY OTHER WEEK)
  3. DOCETAXEL. [Suspect]
     Active Substance: DOCETAXEL
     Indication: OESOPHAGEAL SQUAMOUS CELL CARCINOMA STAGE IV
     Dosage: 30 MG/M2, CYCLIC (EVERY OTHER WEEK)

REACTIONS (1)
  - Tumour lysis syndrome [Recovering/Resolving]
